FAERS Safety Report 10185728 (Version 1)
Quarter: 2014Q2

REPORT INFORMATION
  Report Type: Report from Study
  Country: US (occurrence: US)
  Receive Date: 20140521
  Receipt Date: 20140521
  Transmission Date: 20141212
  Serious: No
  Sender: FDA-Public Use
  Company Number: US-009507513-1405USA006680

PATIENT
  Age: 68 Year
  Sex: Female
  Weight: 82.54 kg

DRUGS (14)
  1. ZOCOR [Suspect]
     Indication: BLOOD CHOLESTEROL INCREASED
     Dosage: UNK, UNKNOWN
     Route: 048
     Dates: start: 201306, end: 2013
  2. HUMIRA [Suspect]
     Indication: PSORIATIC ARTHROPATHY
     Dosage: 40 MG, ONCE IN 2 WEEKS
     Dates: start: 2009, end: 20101017
  3. HUMIRA [Suspect]
     Dosage: 40 MG, ONCE IN 2 WEEKS
     Route: 042
     Dates: start: 201301
  4. ARMOUR THYROID TABLETS [Suspect]
     Indication: HYPOTHYROIDISM
     Dosage: UNK, UNKNOWN
     Route: 048
  5. ARAVA [Suspect]
     Indication: PSORIATIC ARTHROPATHY
     Dosage: UNK, UNKNOWN
     Route: 065
  6. VITAMINS (UNSPECIFIED) [Concomitant]
     Indication: VITAMIN SUPPLEMENTATION
     Dosage: UNK UNK, UNKNOWN
  7. CALCIUM (UNSPECIFIED) [Concomitant]
     Indication: MINERAL SUPPLEMENTATION
     Dosage: UNK
     Route: 048
  8. ESTRADIOL [Concomitant]
     Indication: HORMONE REPLACEMENT THERAPY
     Dosage: UNK UNK, UNKNOWN
     Route: 048
  9. FLUOXETINE [Concomitant]
     Indication: FIBROMYALGIA
     Dosage: UNK, UNKNOWN
     Route: 065
  10. PRAVASTATIN [Concomitant]
     Indication: BLOOD CHOLESTEROL INCREASED
     Dosage: UNK, UNKNOWN
     Route: 048
  11. TRAZODONE HYDROCHLORIDE [Concomitant]
     Indication: FIBROMYALGIA
     Dosage: UNK, UNKNOWN
     Route: 048
  12. LASIX (FUROSEMIDE SODIUM) [Concomitant]
     Indication: FLUID RETENTION
     Dosage: AS REQUIRED
     Route: 048
  13. DIPHENHYDRAMINE HYDROCHLORIDE [Concomitant]
     Indication: RHINORRHOEA
     Dosage: UNK, UNKNOWN
     Route: 048
  14. IMODIUM [Concomitant]
     Indication: DIARRHOEA
     Dosage: AS REQUIRED, UNKNOWN
     Route: 048

REACTIONS (3)
  - Hepatic enzyme increased [Recovered/Resolved]
  - Hepatic enzyme increased [Recovered/Resolved]
  - Incorrect dose administered [Unknown]
